FAERS Safety Report 18007347 (Version 1)
Quarter: 2020Q3

REPORT INFORMATION
  Report Type: Spontaneous
  Country: CN (occurrence: CN)
  Receive Date: 20200710
  Receipt Date: 20200710
  Transmission Date: 20201103
  Serious: Yes (Death)
  Sender: FDA-Public Use
  Company Number: CN-ASTRAZENECA-2020SE85329

PATIENT
  Sex: Male

DRUGS (4)
  1. OSIMERTINIB. [Suspect]
     Active Substance: OSIMERTINIB
     Indication: LUNG ADENOCARCINOMA STAGE IV
     Route: 048
     Dates: start: 201803, end: 201808
  2. CISPLATIN/GEMCITABINE [Concomitant]
     Indication: LUNG ADENOCARCINOMA STAGE IV
     Route: 065
     Dates: start: 201710
  3. CISPLATIN/GEMCITABINE [Concomitant]
     Indication: LUNG ADENOCARCINOMA STAGE IV
     Route: 065
     Dates: start: 201710
  4. OSIMERTINIB. [Suspect]
     Active Substance: OSIMERTINIB
     Indication: LUNG ADENOCARCINOMA STAGE IV
     Route: 048
     Dates: start: 201703, end: 201708

REACTIONS (3)
  - Drug resistance [Fatal]
  - Acquired gene mutation [Fatal]
  - Malignant neoplasm progression [Fatal]
